FAERS Safety Report 24996549 (Version 1)
Quarter: 2025Q1

REPORT INFORMATION
  Report Type: Spontaneous
  Country: TN (occurrence: TN)
  Receive Date: 20250221
  Receipt Date: 20250221
  Transmission Date: 20250409
  Serious: Yes (Other)
  Sender: PHARMACEUTICAL ASSOC
  Company Number: TN-PAIPHARMA-2025-TN-000002

PATIENT
  Age: 5 Year
  Sex: Female

DRUGS (1)
  1. OXYBUTYNIN CHLORIDE [Suspect]
     Active Substance: OXYBUTYNIN CHLORIDE
     Indication: Hypertonic bladder
     Dates: start: 20220115

REACTIONS (1)
  - Blindness [Unknown]

NARRATIVE: CASE EVENT DATE: 20220311
